FAERS Safety Report 10573718 (Version 4)
Quarter: 2015Q2

REPORT INFORMATION
  Report Type: Report from Study
  Country: JP (occurrence: JP)
  Receive Date: 20141110
  Receipt Date: 20150617
  Transmission Date: 20150821
  Serious: Yes (Other)
  Sender: FDA-Public Use
  Company Number: JP-JNJFOC-20141102125

PATIENT
  Age: 31 Year
  Sex: Female
  Weight: 45 kg

DRUGS (11)
  1. PEGASYS [Suspect]
     Active Substance: PEGINTERFERON ALFA-2A
     Indication: CHRONIC HEPATITIS C
     Route: 058
     Dates: start: 20140318, end: 20140501
  2. PEGASYS [Suspect]
     Active Substance: PEGINTERFERON ALFA-2A
     Indication: CHRONIC HEPATITIS C
     Route: 058
     Dates: start: 20140509, end: 20140904
  3. RHYTHMY [Concomitant]
     Active Substance: RILMAZAFONE HYDROCHLORIDE
     Indication: INSOMNIA
     Route: 048
     Dates: start: 20140627, end: 20140908
  4. POSTERISAN [Concomitant]
     Active Substance: LIDOCAINE
     Indication: HAEMORRHOIDAL HAEMORRHAGE
     Route: 061
     Dates: start: 20140703, end: 20140717
  5. RIBAVIRIN. [Suspect]
     Active Substance: RIBAVIRIN
     Indication: CHRONIC HEPATITIS C
     Route: 048
     Dates: start: 20140318, end: 20140912
  6. MYONAL [Concomitant]
     Active Substance: EPERISONE HYDROCHLORIDE
     Indication: MUSCULOSKELETAL STIFFNESS
     Route: 048
     Dates: start: 20140620, end: 20140703
  7. SOLDEM 1 [Concomitant]
     Active Substance: DEXTROSE\SODIUM CHLORIDE\SODIUM LACTATE
     Indication: ADVERSE EVENT
     Route: 041
     Dates: start: 20140711, end: 20140718
  8. SOVRIAD [Suspect]
     Active Substance: SIMEPREVIR
     Indication: CHRONIC HEPATITIS C
     Route: 048
     Dates: start: 20140318, end: 20140616
  9. KENALOG [Concomitant]
     Active Substance: TRIAMCINOLONE ACETONIDE
     Dosage: Q.S.
     Route: 061
     Dates: start: 20140415, end: 20140422
  10. ACETATED RINGER [Concomitant]
     Indication: ADVERSE EVENT
     Route: 041
     Dates: start: 20140408, end: 20140904
  11. NERIPROCT [Concomitant]
     Indication: HAEMORRHOIDAL HAEMORRHAGE
     Route: 061
     Dates: start: 20140718, end: 20140904

REACTIONS (10)
  - Headache [Recovered/Resolved]
  - Anaemia [Recovered/Resolved]
  - Insomnia [Recovered/Resolved]
  - Gastrooesophageal reflux disease [Recovered/Resolved]
  - Leukopenia [Recovered/Resolved]
  - Malaise [Recovered/Resolved]
  - Dermatitis allergic [Recovered/Resolved]
  - Musculoskeletal stiffness [Recovered/Resolved]
  - Haemorrhoidal haemorrhage [Recovered/Resolved]
  - Pyrexia [Recovered/Resolved]

NARRATIVE: CASE EVENT DATE: 20140325
